FAERS Safety Report 15639734 (Version 2)
Quarter: 2019Q1

REPORT INFORMATION
  Report Type: Spontaneous
  Country: JP (occurrence: JP)
  Receive Date: 20181120
  Receipt Date: 20190311
  Transmission Date: 20190417
  Serious: Yes (Other)
  Sender: FDA-Public Use
  Company Number: JP-PFIZER INC-2018470848

PATIENT
  Age: 82 Year
  Sex: Male

DRUGS (2)
  1. SELARA [Suspect]
     Active Substance: EPLERENONE
     Indication: CARDIAC FAILURE CHRONIC
     Dosage: 25 MG, 1X/DAY
     Route: 048
     Dates: start: 20150226, end: 20160727
  2. SELARA [Suspect]
     Active Substance: EPLERENONE
     Dosage: 50 MG, 1X/DAY
     Route: 048
     Dates: start: 20160728, end: 20180725

REACTIONS (1)
  - Renal impairment [Unknown]

NARRATIVE: CASE EVENT DATE: 20180726
